FAERS Safety Report 7807382-9 (Version None)
Quarter: 2011Q4

REPORT INFORMATION
  Report Type: 
  Country: None (occurrence: None)
  Receive Date: 20111011
  Receipt Date: 20110926
  Transmission Date: 20120403
  Serious: Yes (Other)
  Sender: FDA-Public Use
  Company Number: US-ARROW GEN-2011-15472

PATIENT
  Sex: Female
  Weight: 68 kg

DRUGS (1)
  1. FENTANYL-100 [Suspect]
     Indication: PAIN
     Dosage: 1 PATCH EVERY 48 HRS
     Route: 062
     Dates: start: 20110801

REACTIONS (5)
  - CHEST PAIN [None]
  - SOMNOLENCE [None]
  - ACCIDENTAL OVERDOSE [None]
  - DYSPNOEA [None]
  - DRUG INEFFECTIVE [None]
